FAERS Safety Report 12946109 (Version 2)
Quarter: 2016Q4

REPORT INFORMATION
  Report Type: Report from Study
  Country: US (occurrence: US)
  Receive Date: 20161115
  Receipt Date: 20161215
  Transmission Date: 20170207
  Serious: Yes (Hospitalization, Other)
  Sender: FDA-Public Use
  Company Number: US-GILEAD-2016-0243113

PATIENT
  Age: 14 Year
  Sex: Female
  Weight: 47.3 kg

DRUGS (18)
  1. AZTREONAM LYSINE [Suspect]
     Active Substance: AZTREONAM LYSINE
     Indication: PSEUDOMONAS INFECTION
  2. ZENPEP [Concomitant]
     Active Substance: PANCRELIPASE AMYLASE\PANCRELIPASE LIPASE\PANCRELIPASE PROTEASE
     Dosage: 6 DF, WITH MEALS
     Route: 048
  3. AMIKIN [Concomitant]
     Active Substance: AMIKACIN SULFATE
     Dosage: 500 MG, BID
     Route: 055
  4. CULTURELLE FOR KIDS                /03562201/ [Concomitant]
     Dosage: 1 DF, BID
     Route: 048
  5. AZTREONAM LYSINE [Suspect]
     Active Substance: AZTREONAM LYSINE
     Indication: CYSTIC FIBROSIS LUNG
  6. DRISDOL [Concomitant]
     Active Substance: ERGOCALCIFEROL
     Dosage: 50,000 UNITS, QD
     Route: 048
  7. MIRALAX [Concomitant]
     Active Substance: POLYETHYLENE GLYCOL 3350
     Dosage: 17 G, BID
     Route: 048
  8. MOTRIN [Concomitant]
     Active Substance: IBUPROFEN
     Dosage: 400 MG, Q 8 HR PRN
     Route: 048
  9. AQUADEKS                           /07679501/ [Concomitant]
     Active Substance: MINERALS\VITAMINS
     Dosage: 1 DF, BID
     Route: 048
  10. PRILOSEC [Concomitant]
     Active Substance: OMEPRAZOLE MAGNESIUM
     Dosage: 40 MG, QD
     Route: 048
  11. FLONASE [Concomitant]
     Active Substance: FLUTICASONE PROPIONATE
     Dosage: 1 DF, QHS
     Route: 045
  12. PROVENTIL HFA                      /00139502/ [Concomitant]
     Dosage: 2 DF, BID AND PRN
     Route: 055
  13. SODIUM CHLORIDE. [Concomitant]
     Active Substance: SODIUM CHLORIDE
     Dosage: 4 ML, BID
     Route: 055
  14. PULMOZYME [Concomitant]
     Active Substance: DORNASE ALFA
     Dosage: 2.5 MG, QHS
     Route: 055
  15. SYMBICORT [Concomitant]
     Active Substance: BUDESONIDE\FORMOTEROL FUMARATE DIHYDRATE
     Dosage: 2 DF, BID
     Route: 055
  16. SENOKOT [Concomitant]
     Active Substance: SENNOSIDES
     Dosage: 1 DF, BID
     Route: 048
  17. ORKAMBI [Concomitant]
     Active Substance: IVACAFTOR\LUMACAFTOR
     Dosage: 2 DF, BID (Q 12 HR)
     Route: 048
  18. AZTREONAM LYSINE [Suspect]
     Active Substance: AZTREONAM LYSINE
     Indication: CYSTIC FIBROSIS
     Dosage: 75 MG, UNK
     Route: 055
     Dates: start: 20110506

REACTIONS (3)
  - Abdominal pain [Not Recovered/Not Resolved]
  - Irritable bowel syndrome [Unknown]
  - Ovarian cyst ruptured [Unknown]

NARRATIVE: CASE EVENT DATE: 20161105
